FAERS Safety Report 5991732-2 (Version None)
Quarter: 2008Q4

REPORT INFORMATION
  Report Type: 
  Country: None (occurrence: None)
  Receive Date: 20081202
  Receipt Date: 20071023
  Transmission Date: 20090506
  Serious: Yes (Other)
  Sender: FDA-Public Use
  Company Number: WAES 0708USA00298

PATIENT
  Age: 58 Year
  Sex: Female
  Weight: 61.2356 kg

DRUGS (3)
  1. FOSAMAX [Suspect]
     Indication: OSTEOPENIA
     Dosage: 70 MG/WKY/PO
     Route: 048
     Dates: start: 20031001, end: 20060301
  2. SYNTHROID [Concomitant]
  3. XANAX [Concomitant]

REACTIONS (11)
  - ANXIETY [None]
  - DEPRESSION [None]
  - DIZZINESS [None]
  - FATIGUE [None]
  - IRRITABLE BOWEL SYNDROME [None]
  - MIGRAINE [None]
  - OSTEOMYELITIS [None]
  - OSTEONECROSIS [None]
  - SINUS DISORDER [None]
  - SYNCOPE [None]
  - URINARY TRACT INFECTION [None]
